FAERS Safety Report 11147730 (Version 5)
Quarter: 2017Q3

REPORT INFORMATION
  Report Type: Report from Study
  Country: FR (occurrence: FR)
  Receive Date: 20150529
  Receipt Date: 20170905
  Transmission Date: 20171127
  Serious: Yes (Other)
  Sender: FDA-Public Use
  Company Number: FR-PFIZER INC-2015174161

PATIENT
  Age: 46 Year
  Sex: Female
  Weight: 64 kg

DRUGS (9)
  1. PALBOCICLIB [Suspect]
     Active Substance: PALBOCICLIB
     Dosage: 25 MG, DAILY
     Route: 048
     Dates: start: 20150617, end: 20151118
  2. TRINORDIOL [Concomitant]
     Active Substance: ETHINYL ESTRADIOL\LEVONORGESTREL
     Indication: CONTRACEPTION
     Dosage: 1 DF, DAILY
     Route: 048
  3. PALBOCICLIB [Suspect]
     Active Substance: PALBOCICLIB
     Indication: METASTATIC MALIGNANT MELANOMA
     Dosage: 25 MG, DAILY
     Route: 048
     Dates: start: 20150325, end: 20150520
  4. ZELBORAF [Suspect]
     Active Substance: VEMURAFENIB
     Indication: METASTATIC MALIGNANT MELANOMA
     Dosage: UNK
     Route: 048
     Dates: start: 20150326
  5. TAHOR [Concomitant]
     Active Substance: ATORVASTATIN CALCIUM
     Indication: HYPERCHOLESTEROLAEMIA
     Dosage: 10 MG, DAILY
     Route: 048
  6. LEVOTHYROX [Concomitant]
     Active Substance: LEVOTHYROXINE
     Indication: HYPOTHYROIDISM
     Dosage: 50
     Route: 048
     Dates: start: 20141115, end: 20150520
  7. FLAMMAZINE [Concomitant]
     Active Substance: SILVER SULFADIAZINE
     Indication: INFECTION PROPHYLAXIS
     Dosage: 1 DF, DAILY
     Dates: start: 20150407
  8. ZELBORAF [Suspect]
     Active Substance: VEMURAFENIB
     Dosage: 1440 MG, DAILY
     Route: 048
     Dates: start: 20150617, end: 20151118
  9. ARTELAC /00002701/ [Concomitant]
     Active Substance: ASPIRIN
     Indication: DRY EYE
     Dosage: 1 DF, DAILY
     Route: 031
     Dates: start: 20150407

REACTIONS (1)
  - Gamma-glutamyltransferase increased [Recovered/Resolved]

NARRATIVE: CASE EVENT DATE: 20150520
